FAERS Safety Report 14150190 (Version 5)
Quarter: 2019Q1

REPORT INFORMATION
  Report Type: Report from Study
  Country: US (occurrence: US)
  Receive Date: 20171101
  Receipt Date: 20190118
  Transmission Date: 20190417
  Serious: No
  Sender: FDA-Public Use
  Company Number: PHEH2017US035364

PATIENT
  Sex: Male

DRUGS (1)
  1. COSENTYX [Suspect]
     Active Substance: SECUKINUMAB
     Indication: PRODUCT USED FOR UNKNOWN INDICATION
     Route: 065

REACTIONS (6)
  - Skin disorder [Unknown]
  - Condition aggravated [Unknown]
  - Nasopharyngitis [Unknown]
  - Pruritus generalised [Unknown]
  - Skin exfoliation [Unknown]
  - Pain [Unknown]
